FAERS Safety Report 8449529 (Version 4)
Quarter: 2014Q2

REPORT INFORMATION
  Report Type: Spontaneous
  Country: JP (occurrence: JP)
  Receive Date: 20120308
  Receipt Date: 20131017
  Transmission Date: 20141212
  Serious: Yes (Death)
  Sender: FDA-Public Use
  Company Number: JP-PFIZER INC-2012060030

PATIENT
  Sex: Female

DRUGS (1)
  1. SOLU-CORTEF [Suspect]
     Indication: ORGANISING PNEUMONIA
     Dosage: 200 ML/DAY

REACTIONS (3)
  - White blood cell count increased [Fatal]
  - Neutrophil count increased [Fatal]
  - Lymphopenia [Fatal]
